FAERS Safety Report 24188152 (Version 1)
Quarter: 2024Q3

REPORT INFORMATION
  Report Type: Spontaneous
  Country: US (occurrence: US)
  Receive Date: 20240808
  Receipt Date: 20240808
  Transmission Date: 20241017
  Serious: Yes (Other)
  Sender: ANAZAOHEALTH CORPORATION
  Company Number: US-AnazaoHealth Corporation-2160160

PATIENT
  Age: 60 Year
  Sex: Female
  Weight: 78.636 kg

DRUGS (4)
  1. TESTOSTERONE [Suspect]
     Active Substance: TESTOSTERONE
     Indication: Postmenopause
     Route: 058
     Dates: start: 20211214
  2. TESTOSTERONE [Suspect]
     Active Substance: TESTOSTERONE
     Indication: Abnormal weight gain
  3. TESTOSTERONE [Suspect]
     Active Substance: TESTOSTERONE
     Indication: Malaise
  4. TESTOSTERONE [Concomitant]
     Active Substance: TESTOSTERONE
     Route: 058
     Dates: start: 20211214

REACTIONS (1)
  - Endometrial adenocarcinoma [Unknown]

NARRATIVE: CASE EVENT DATE: 20240710
